FAERS Safety Report 5649147-2 (Version None)
Quarter: 2008Q1

REPORT INFORMATION
  Report Type: 
  Country: None (occurrence: None)
  Receive Date: 20080131
  Receipt Date: 20070928
  Transmission Date: 20080703
  Serious: Yes (Hospitalization)
  Sender: FDA-Public Use
  Company Number: US200710000881

PATIENT
  Age: 59 Year
  Sex: Male
  Weight: 76.6 kg

DRUGS (3)
  1. BYETTA [Suspect]
     Indication: TYPE 2 DIABETES MELLITUS
     Dosage: 5 UG, 2/D, SUBCUTANEOUS
     Route: 058
     Dates: start: 20070401
  2. GLYBURIDE AND METFORMIN HCL [Concomitant]
  3. METFORMIN HCL [Concomitant]

REACTIONS (7)
  - BLOOD GLUCOSE DECREASED [None]
  - DRUG INEFFECTIVE [None]
  - FURUNCLE [None]
  - HICCUPS [None]
  - LYMPHADENOPATHY [None]
  - VOMITING [None]
  - WEIGHT DECREASED [None]
